FAERS Safety Report 23528151 (Version 2)
Quarter: 2024Q1

REPORT INFORMATION
  Report Type: Report from Study
  Country: US (occurrence: US)
  Receive Date: 20240215
  Receipt Date: 20240306
  Transmission Date: 20240409
  Serious: Yes (Hospitalization)
  Sender: FDA-Public Use
  Company Number: US-009507513-2402USA004196

PATIENT
  Age: 32 Year
  Sex: Female
  Weight: 59.6 kg

DRUGS (19)
  1. KEYTRUDA [Suspect]
     Active Substance: PEMBROLIZUMAB
     Dosage: 200 MILLIGRAM, Q3W
     Route: 042
     Dates: start: 20240124, end: 20240124
  2. ADRIAMYCIN [Suspect]
     Active Substance: DOXORUBICIN HYDROCHLORIDE
     Dosage: 60 MILLIGRAM/SQ. METER, Q2W
     Route: 042
     Dates: start: 20240110
  3. CYTOXAN [Suspect]
     Active Substance: CYCLOPHOSPHAMIDE
     Dosage: 600 MILLIGRAM/SQ. METER, Q2W
     Route: 042
     Dates: start: 20240110
  4. CARBOPLATIN [Suspect]
     Active Substance: CARBOPLATIN
     Dosage: AUC 1.5, Q1W
     Route: 042
     Dates: start: 20231018
  5. TAXOL [Suspect]
     Active Substance: PACLITAXEL
     Dosage: 80 MILLIGRAM/SQ. METER, QW
     Route: 042
     Dates: start: 20231018
  6. DURVALUMAB [Suspect]
     Active Substance: DURVALUMAB
     Dosage: 1120 MILLIGRAM, Q3W
     Route: 042
     Dates: start: 20230719
  7. DATOPOTAMAB DERUXTECAN [Suspect]
     Active Substance: DATOPOTAMAB DERUXTECAN
     Dosage: 6 MILLIGRAM/KILOGRAM, Q3W
     Route: 042
     Dates: start: 20230719
  8. MENOTROPINS [Concomitant]
     Active Substance: MENOTROPINS
     Indication: Infertility
     Dosage: 150 INTERNATIONAL UNIT, QD
     Route: 058
     Dates: start: 20230623
  9. PROCHLORPERAZINE [Concomitant]
     Active Substance: PROCHLORPERAZINE
     Indication: Nausea
     Dosage: 10 MG DAILY, PRN
     Route: 048
     Dates: start: 20230621
  10. GOSERELIN ACETATE [Concomitant]
     Active Substance: GOSERELIN ACETATE
     Indication: Infertility
     Dosage: 3.6 MILLIGRAM, Q3W
     Route: 058
     Dates: start: 20230906
  11. SYSTANE (HYPROMELLOSE 2910 (4000 MPA.S)) [Concomitant]
     Active Substance: HYPROMELLOSE 2910 (4000 MPA.S)
     Indication: Dry eye
     Dosage: 0.5 INCH, QD
     Route: 047
     Dates: start: 20230809
  12. HYDROCORTISONE [Concomitant]
     Active Substance: HYDROCORTISONE
     Dosage: 5 MILLIGRAM, TID
     Route: 048
     Dates: start: 20231201
  13. CLINDAMYCIN [Concomitant]
     Active Substance: CLINDAMYCIN
     Indication: Product used for unknown indication
     Dosage: 1 PERCENT, BID
     Route: 061
     Dates: start: 20240119
  14. DEXAMETHASONE [Concomitant]
     Active Substance: DEXAMETHASONE
     Indication: Stomatitis
     Dosage: 0.5 MILLIGRAM, QID
     Route: 048
     Dates: start: 20230809
  15. FILGRASTIM [Concomitant]
     Active Substance: FILGRASTIM
     Indication: Chemotherapy side effect prophylaxis
     Dosage: 300 MICROGRAM, BIW
     Route: 058
     Dates: start: 20231213
  16. GABAPENTIN [Concomitant]
     Active Substance: GABAPENTIN
     Indication: Sleep disorder
     Dosage: 100 MG DAILY, PRN
     Route: 061
     Dates: start: 20231220
  17. GABAPENTIN [Concomitant]
     Active Substance: GABAPENTIN
     Indication: Hot flush
  18. NIFEDIPINE [Concomitant]
     Active Substance: NIFEDIPINE
     Indication: Proctalgia
     Dosage: 0.3 PERCENT, TID
     Route: 061
     Dates: start: 20240125
  19. RIVAROXABAN [Concomitant]
     Active Substance: RIVAROXABAN
     Indication: Product used for unknown indication
     Dosage: 20 MILLIGRAM, QD
     Route: 048
     Dates: start: 20231208

REACTIONS (1)
  - Febrile neutropenia [Recovered/Resolved]

NARRATIVE: CASE EVENT DATE: 20240201
